FAERS Safety Report 4994834-2 (Version None)
Quarter: 2006Q2

REPORT INFORMATION
  Report Type: 
  Country: None (occurrence: None)
  Receive Date: 20060508
  Receipt Date: 20060502
  Transmission Date: 20061013
  Serious: Yes (Hospitalization)
  Sender: FDA-Public Use
  Company Number: PHRM2006FR01458

PATIENT
  Age: 58 Year
  Sex: Male

DRUGS (8)
  1. TEGRETOL [Suspect]
     Route: 048
     Dates: start: 20060225, end: 20060323
  2. LEXOMIL [Suspect]
     Route: 048
     Dates: end: 20060323
  3. ACETAMINOPHEN [Suspect]
     Route: 048
     Dates: end: 20060323
  4. ZOLOFT [Suspect]
     Route: 048
     Dates: start: 20060225, end: 20060323
  5. TEMODAL [Suspect]
     Route: 048
     Dates: start: 20060209, end: 20060323
  6. ESOMEPRAXOLE [Suspect]
     Route: 048
     Dates: end: 20060323
  7. RADIOTHERAPY [Concomitant]
     Indication: GLIOMA
     Dates: start: 20051201
  8. CHEMOTHERAPEUTICS,OTHER [Concomitant]
     Indication: GLIOMA
     Dates: start: 20051201

REACTIONS (3)
  - HERPES VIRUS INFECTION [None]
  - RASH PUSTULAR [None]
  - TOXIC SKIN ERUPTION [None]
